FAERS Safety Report 26178218 (Version 1)
Quarter: 2025Q4

REPORT INFORMATION
  Report Type: Spontaneous
  Country: US (occurrence: US)
  Receive Date: 20251219
  Receipt Date: 20251219
  Transmission Date: 20260119
  Serious: No
  Sender: IPSEN BIOPHARMACEUTICALS, INC.
  Company Number: US-IPSEN Group, Research and Development-2025-30647

PATIENT
  Sex: Male
  Weight: 115.12 kg

DRUGS (1)
  1. SOMATULINE DEPOT [Suspect]
     Active Substance: LANREOTIDE ACETATE
     Indication: Acromegaly
     Dosage: 90 MG UNDER THE SKIN, DEEP SUBCUTANEOUS
     Route: 058

REACTIONS (3)
  - Fatigue [Unknown]
  - Brain fog [Unknown]
  - Drug ineffective [Unknown]
